FAERS Safety Report 6885552-4 (Version None)
Quarter: 2010Q3

REPORT INFORMATION
  Report Type: 
  Country: None (occurrence: None)
  Receive Date: 20100729
  Receipt Date: 20100717
  Transmission Date: 20110219
  Serious: Yes (Life-Threatening, Other)
  Sender: FDA-Public Use
  Company Number: DE-MYLANLABS-2010S1012743

PATIENT
  Age: 29 Year
  Sex: Female
  Weight: 55 kg

DRUGS (3)
  1. DOXYCYCLINE [Suspect]
     Indication: INTENTIONAL OVERDOSE
     Route: 048
     Dates: start: 20100717, end: 20100717
  2. MCP /00041901/ [Suspect]
     Indication: INTENTIONAL OVERDOSE
     Route: 048
     Dates: start: 20100717, end: 20100717
  3. ZOPICLONE [Suspect]
     Indication: INTENTIONAL OVERDOSE
     Route: 048
     Dates: start: 20100717, end: 20100717

REACTIONS (4)
  - FATIGUE [None]
  - HYPERTENSION [None]
  - INTENTIONAL OVERDOSE [None]
  - SUICIDE ATTEMPT [None]
